FAERS Safety Report 8832683 (Version 1)
Quarter: 2012Q4

REPORT INFORMATION
  Report Type: Spontaneous
  Country: US (occurrence: None)
  Receive Date: 20121010
  Receipt Date: 20121010
  Transmission Date: 20130627
  Serious: Yes (Other)
  Sender: FDA-Public Use
  Company Number: None

PATIENT
  Age: 54 Year
  Sex: Female
  Weight: 68.04 kg

DRUGS (2)
  1. METHYLPREDNISOLONE [Suspect]
     Indication: NECK INJURY
     Dates: start: 20120419, end: 20120420
  2. METHYLPREDNISOLONE [Suspect]
     Indication: NECK INJURY
     Dates: start: 20120705, end: 20120705

REACTIONS (7)
  - Nausea [None]
  - Colitis [None]
  - Gastroenteritis salmonella [None]
  - Heart rate increased [None]
  - Hypotension [None]
  - Meningitis fungal [None]
  - Product contamination [None]
